FAERS Safety Report 4397092-5 (Version None)
Quarter: 2004Q3

REPORT INFORMATION
  Report Type: 
  Country: None (occurrence: None)
  Receive Date: 20040708
  Receipt Date: 20040628
  Transmission Date: 20050211
  Serious: Yes (Hospitalization)
  Sender: FDA-Public Use
  Company Number: 2004AP03387

PATIENT
  Age: 49 Year
  Sex: Male

DRUGS (7)
  1. IRESSA [Suspect]
     Indication: NON-SMALL CELL LUNG CANCER
     Dosage: 250 MG DAILY PO
     Route: 048
     Dates: start: 20020524, end: 20040622
  2. LOXONIN [Concomitant]
  3. MUCOSTA [Concomitant]
  4. ALOSENN [Concomitant]
  5. MS CONTIN [Concomitant]
  6. MAGNESIUM OXIDE [Concomitant]
  7. PURSENNID [Concomitant]

REACTIONS (3)
  - DRUG INTERACTION [None]
  - ILEUS [None]
  - NEUROPATHY PERIPHERAL [None]
